FAERS Safety Report 8857939 (Version 1)
Quarter: 2012Q4

REPORT INFORMATION
  Report Type: 
  Country: US (occurrence: US)
  Receive Date: 20121024
  Receipt Date: 20121024
  Transmission Date: 20130627
  Serious: No
  Sender: FDA-Public Use
  Company Number: US-AMGEN-USASP2012003650

PATIENT
  Age: 67 Year
  Sex: Male
  Weight: 120.18 kg

DRUGS (15)
  1. ENBREL [Suspect]
     Indication: PRODUCT USED FOR UNKNOWN INDICATION
     Dosage: 50 mg, qwk
     Dates: end: 201112
  2. LISINOPRIL [Concomitant]
     Dosage: 2.5 mg, UNK
  3. ATENOLOL [Concomitant]
     Dosage: 100 mg, UNK
  4. LIPITOR [Concomitant]
     Dosage: 10 mg, UNK
  5. PREDNISONE [Concomitant]
     Dosage: 1 mg, UNK
  6. FISH OIL [Concomitant]
     Dosage: UNK
  7. METHOTREXATE [Concomitant]
     Dosage: 2.5 mg, UNK
  8. FOLIC ACID [Concomitant]
  9. TESTOSTERONE [Concomitant]
     Dosage: UNK
  10. LEVOCETIRIZINA [Concomitant]
     Dosage: UNK
  11. ASPIRIN [Concomitant]
     Dosage: 81 mg, UNK
  12. GLUCOSAMINE CHONDROITIN MSM [Concomitant]
     Dosage: UNK
  13. CO Q 10 [Concomitant]
     Dosage: 100 mg, UNK
  14. VITAMIN B COMPLEX [Concomitant]
     Dosage: UNK
  15. VITAMIN E                          /00110501/ [Concomitant]
     Dosage: 1000 IU, UNK

REACTIONS (4)
  - Haematochezia [Recovered/Resolved]
  - Pollakiuria [Recovered/Resolved]
  - Ocular discomfort [Recovered/Resolved]
  - Rash [Recovered/Resolved]
